FAERS Safety Report 9091149 (Version 1)
Quarter: 2013Q1

REPORT INFORMATION
  Report Type: Report from Study
  Country: US (occurrence: US)
  Receive Date: 20130201
  Receipt Date: 20130201
  Transmission Date: 20140127
  Serious: No
  Sender: FDA-Public Use
  Company Number: US-ABBOTT-12P-163-1026998-00

PATIENT
  Sex: Female
  Weight: 104.42 kg

DRUGS (16)
  1. HUMIRA [Suspect]
     Indication: RHEUMATOID ARTHRITIS
     Dates: start: 2005
  2. ASPIRIN [Concomitant]
     Indication: PRODUCT USED FOR UNKNOWN INDICATION
  3. CENTRUM [Concomitant]
     Indication: VITAMIN SUPPLEMENTATION
  4. CRANBERRY [Concomitant]
     Indication: MEDICAL DIET
  5. CYCLOBENZAPRINE [Concomitant]
     Indication: PAIN
  6. FLUTICASONE [Concomitant]
     Indication: ASTHMA
  7. GLUCOSAMINE [Concomitant]
     Indication: MEDICAL DIET
  8. METAMUCIL [Concomitant]
     Indication: CONSTIPATION
  9. METFORMIN [Concomitant]
     Indication: DIABETES MELLITUS
  10. NABUMETONE [Concomitant]
     Indication: PAIN
  11. PATANOL [Concomitant]
     Indication: EYE INFLAMMATION
     Dosage: EYE DROPS
  12. PRANDIN [Concomitant]
     Indication: DIABETES MELLITUS
  13. PRILOSEC [Concomitant]
     Indication: GASTROOESOPHAGEAL REFLUX DISEASE
  14. SIMVASTATIN [Concomitant]
     Indication: BLOOD CHOLESTEROL INCREASED
  15. TROSPIUM [Concomitant]
     Indication: HYPERTONIC BLADDER
  16. VITAMIN D3 [Concomitant]
     Indication: VITAMIN SUPPLEMENTATION

REACTIONS (1)
  - Urinary tract infection [Recovered/Resolved]
